FAERS Safety Report 23573826 (Version 7)
Quarter: 2025Q4

REPORT INFORMATION
  Report Type: Report from Study
  Country: CA (occurrence: CA)
  Receive Date: 20240228
  Receipt Date: 20251204
  Transmission Date: 20260118
  Serious: Yes (Hospitalization, Other)
  Sender: CELLTRION
  Company Number: CA-CELLTRION INC.-2024CA004703

PATIENT

DRUGS (5)
  1. ADALIMUMAB-AATY [Suspect]
     Active Substance: ADALIMUMAB-AATY
     Indication: Crohn^s disease
     Dosage: SELF-ADMINISTERING (160 MG) 4 INJECTIONS OF YUFLYMA (INDUCTION DOSE) / 40 MILLIGRAM 1 EVERY 2 WEEKS
     Route: 058
     Dates: start: 20240206
  2. ADALIMUMAB-AATY [Suspect]
     Active Substance: ADALIMUMAB-AATY
     Dosage: 40 MILLIGRAM Q2WEEKS
     Route: 058
     Dates: start: 20240530
  3. ADALIMUMAB-AATY [Suspect]
     Active Substance: ADALIMUMAB-AATY
     Dosage: 40 MILLIGRAM Q2WEEKS
     Route: 058
     Dates: start: 20240617
  4. ADALIMUMAB-AATY [Suspect]
     Active Substance: ADALIMUMAB-AATY
     Dosage: 40 MG, (MAINTENANCE) EVERY WEEK
     Route: 058
     Dates: start: 20240206
  5. VITAMINS NOS [Concomitant]
     Active Substance: VITAMINS

REACTIONS (3)
  - Crohn^s disease [Recovered/Resolved]
  - Dizziness [Recovered/Resolved]
  - Intentional dose omission [Recovered/Resolved]

NARRATIVE: CASE EVENT DATE: 20240612
